FAERS Safety Report 24223339 (Version 1)
Quarter: 2024Q3

REPORT INFORMATION
  Report Type: Spontaneous
  Country: SE (occurrence: SE)
  Receive Date: 20240819
  Receipt Date: 20240819
  Transmission Date: 20241017
  Serious: Yes (Disabling)
  Sender: ACCORD
  Company Number: None

PATIENT
  Age: 50 Year
  Sex: Male
  Weight: 150 kg

DRUGS (1)
  1. EPLERENONE [Suspect]
     Active Substance: EPLERENONE
     Indication: Product used for unknown indication
     Dosage: 3 PER DAY DOSE: SUBSEQUENT DOSE
     Dates: start: 2022, end: 2022

REACTIONS (2)
  - Amnesia [Not Recovered/Not Resolved]
  - Gynaecomastia [Not Recovered/Not Resolved]
